FAERS Safety Report 8769088 (Version 1)
Quarter: 2012Q4

REPORT INFORMATION
  Report Type: 
  Country: RU (occurrence: RU)
  Receive Date: 20120904
  Receipt Date: 20120904
  Transmission Date: 20130627
  Serious: Yes (Other)
  Sender: FDA-Public Use
  Company Number: RU-ELI_LILLY_AND_COMPANY-RU201208007366

PATIENT
  Age: 55 Year
  Sex: Female

DRUGS (1)
  1. INSULIN LISPRO [Suspect]

REACTIONS (5)
  - Skin exfoliation [Recovered/Resolved with Sequelae]
  - Rash [Recovered/Resolved with Sequelae]
  - Pruritus [Recovered/Resolved with Sequelae]
  - Dermatitis psoriasiform [Recovered/Resolved with Sequelae]
  - Psoriasis [Unknown]
